FAERS Safety Report 4302494-9 (Version None)
Quarter: 2004Q1

REPORT INFORMATION
  Report Type: 
  Country: None (occurrence: None)
  Receive Date: 20040220
  Receipt Date: 20040217
  Transmission Date: 20041129
  Serious: Yes (Hospitalization)
  Sender: FDA-Public Use
  Company Number: THQ2004A00157

PATIENT
  Age: 29 Year
  Sex: Female

DRUGS (4)
  1. LUPRON [Suspect]
     Indication: ADRENAL SUPPRESSION
     Dosage: SUBCUTANEOUS
     Route: 058
  2. GONAL-F [Suspect]
     Indication: IN VITRO FERTILISATION
     Dosage: 75 IU
  3. PREGNYL [Suspect]
     Indication: IN VITRO FERTILISATION
  4. PROGESTERONE [Concomitant]

REACTIONS (27)
  - ABDOMINAL DISTENSION [None]
  - ARTHRALGIA [None]
  - ASTHENIA [None]
  - CAESAREAN SECTION [None]
  - COMPLICATIONS OF MATERNAL EXPOSURE TO THERAPEUTIC DRUGS [None]
  - CONDITION AGGRAVATED [None]
  - CONFUSIONAL STATE [None]
  - DRUG EXPOSURE DURING PREGNANCY [None]
  - DYSPNOEA [None]
  - GRAND MAL CONVULSION [None]
  - HAEMATOCRIT DECREASED [None]
  - HEMIPLEGIA [None]
  - HYDROMETRA [None]
  - HYPERVENTILATION [None]
  - INTRA-UTERINE DEATH [None]
  - LIVE BIRTH [None]
  - MULTIPLE PREGNANCY [None]
  - NEUROLOGICAL SYMPTOM [None]
  - OOCYTE HARVEST [None]
  - OVARIAN ENLARGEMENT [None]
  - OVARIAN HYPERSTIMULATION SYNDROME [None]
  - POST PROCEDURAL COMPLICATION [None]
  - PROTEIN S DECREASED [None]
  - SUPERIOR SAGITTAL SINUS THROMBOSIS [None]
  - VASCULAR PROCEDURE COMPLICATION [None]
  - VOMITING PROJECTILE [None]
  - WHITE BLOOD CELL COUNT INCREASED [None]
